FAERS Safety Report 17845556 (Version 8)
Quarter: 2021Q2

REPORT INFORMATION
  Report Type: Spontaneous
  Country: US (occurrence: US)
  Receive Date: 20200601
  Receipt Date: 20210505
  Transmission Date: 20210717
  Serious: Yes (Other)
  Sender: FDA-Public Use
  Company Number: US-PFIZER INC-2020211590

PATIENT
  Age: 46 Year
  Sex: Female
  Weight: 62 kg

DRUGS (1)
  1. LYRICA [Suspect]
     Active Substance: PREGABALIN
     Indication: SPINAL STENOSIS
     Dosage: 200 MG, 3X/DAY
     Route: 048

REACTIONS (17)
  - Hypertension [Unknown]
  - Vision blurred [Unknown]
  - Fall [Unknown]
  - Movement disorder [Not Recovered/Not Resolved]
  - Product dose omission issue [Unknown]
  - Bruxism [Unknown]
  - Feeling abnormal [Unknown]
  - Product closure issue [Unknown]
  - Illness [Not Recovered/Not Resolved]
  - Chills [Unknown]
  - Cognitive disorder [Unknown]
  - Poor quality product administered [Unknown]
  - Hyperhidrosis [Unknown]
  - Impaired work ability [Unknown]
  - Arthralgia [Unknown]
  - Intervertebral disc degeneration [Unknown]
  - Paraesthesia [Unknown]

NARRATIVE: CASE EVENT DATE: 20200526
